FAERS Safety Report 8794319 (Version 1)
Quarter: 2012Q4

REPORT INFORMATION
  Report Type: 
  Country: EC (occurrence: EC)
  Receive Date: 20120917
  Receipt Date: 20120917
  Transmission Date: 20130627
  Serious: Yes (Hospitalization, Disabling)
  Sender: FDA-Public Use
  Company Number: PHHY2012EC080188

PATIENT
  Sex: Female

DRUGS (1)
  1. EXELON PATCH [Suspect]
     Indication: DEMENTIA ALZHEIMER^S TYPE
     Dosage: 9 mg daily
     Route: 062

REACTIONS (3)
  - Head injury [Recovering/Resolving]
  - Haemorrhage [Recovering/Resolving]
  - Fall [Recovering/Resolving]
